FAERS Safety Report 12606862 (Version 1)
Quarter: 2016Q3

REPORT INFORMATION
  Report Type: Spontaneous
  Country: TH (occurrence: TH)
  Receive Date: 20160729
  Receipt Date: 20160729
  Transmission Date: 20161109
  Serious: Yes (Death, Hospitalization)
  Sender: FDA-Public Use
  Company Number: TH-BAXTER-2016BAX035805

PATIENT
  Sex: Female

DRUGS (1)
  1. DIANEAL [Suspect]
     Active Substance: CALCIUM CHLORIDE\DEXTROSE\MAGNESIUM CHLORIDE\SODIUM CHLORIDE\SODIUM LACTATE
     Indication: PERITONEAL DIALYSIS
     Route: 033

REACTIONS (5)
  - Peritonitis [Not Recovered/Not Resolved]
  - Sepsis [Fatal]
  - Hypoalbuminaemia [Unknown]
  - Depression [Unknown]
  - Chronic disease [Unknown]

NARRATIVE: CASE EVENT DATE: 2016
